FAERS Safety Report 6906110-9 (Version None)
Quarter: 2010Q3

REPORT INFORMATION
  Report Type: 
  Country: None (occurrence: None)
  Receive Date: 20100804
  Receipt Date: 20100730
  Transmission Date: 20110219
  Serious: Yes (Death)
  Sender: FDA-Public Use
  Company Number: US-CELGENEUS-163-21880-10080131

PATIENT

DRUGS (4)
  1. REVLIMID [Suspect]
     Indication: MULTIPLE MYELOMA
     Route: 048
     Dates: start: 20090818
  2. REVLIMID [Suspect]
     Route: 048
     Dates: start: 20100101
  3. REVLIMID [Suspect]
     Route: 048
     Dates: start: 20100301
  4. REVLIMID [Suspect]
     Route: 048
     Dates: start: 20100401

REACTIONS (1)
  - DEATH [None]
